FAERS Safety Report 23199187 (Version 1)
Quarter: 2023Q4

REPORT INFORMATION
  Report Type: Spontaneous
  Country: US (occurrence: US)
  Receive Date: 20231117
  Receipt Date: 20231117
  Transmission Date: 20240110
  Serious: No
  Sender: FDA-Public Use
  Company Number: US-Stemline Therapeutics, Inc.-2023ST003013

PATIENT
  Age: 67 Year
  Sex: Female

DRUGS (5)
  1. ORSERDU [Suspect]
     Active Substance: ELACESTRANT
     Indication: Product used for unknown indication
     Dosage: 258MG ONCE DAILY.
     Route: 048
     Dates: start: 20230714
  2. ANASTROZOLE [Concomitant]
     Active Substance: ANASTROZOLE
  3. DULOXETINE [Concomitant]
     Active Substance: DULOXETINE
  4. VITAMIN D3 [Concomitant]
     Active Substance: CHOLECALCIFEROL
  5. IBUPROFEN [Concomitant]
     Active Substance: IBUPROFEN

REACTIONS (2)
  - Brain fog [Unknown]
  - Dyspnoea [Unknown]
